FAERS Safety Report 23135378 (Version 1)
Quarter: 2023Q4

REPORT INFORMATION
  Report Type: Spontaneous
  Country: US (occurrence: None)
  Receive Date: 20231101
  Receipt Date: 20231101
  Transmission Date: 20240110
  Serious: No
  Sender: FDA-Public Use
  Company Number: None

PATIENT
  Age: 81 Year
  Sex: Female
  Weight: 70.31 kg

DRUGS (1)
  1. TREMFYA [Suspect]
     Active Substance: GUSELKUMAB
     Indication: Psoriasis
     Dosage: OTHER FREQUENCY : WEEK 0 AND WEEK 4;?
     Route: 058
     Dates: start: 202102

REACTIONS (4)
  - Illness [None]
  - Therapy interrupted [None]
  - Neck pain [None]
  - Inflammation [None]
